FAERS Safety Report 8771869 (Version 1)
Quarter: 2012Q4

REPORT INFORMATION
  Report Type: 
  Country: NO (occurrence: NO)
  Receive Date: 20120907
  Receipt Date: 20120907
  Transmission Date: 20130627
  Serious: Yes (Other)
  Sender: FDA-Public Use
  Company Number: NO-TEVA-357399ISR

PATIENT
  Sex: Female

DRUGS (1)
  1. METHOTREXATE TEVA [Suspect]

REACTIONS (1)
  - Inflammation [Recovering/Resolving]
